FAERS Safety Report 4704141-0 (Version None)
Quarter: 2005Q2

REPORT INFORMATION
  Report Type: 
  Country: None (occurrence: None)
  Receive Date: 20050630
  Receipt Date: 20050519
  Transmission Date: 20051028
  Serious: Yes (Hospitalization)
  Sender: FDA-Public Use
  Company Number: CA-SANOFI-SYNTHELABO-F01200500775

PATIENT
  Sex: Male

DRUGS (8)
  1. OXALIPLATIN [Suspect]
     Indication: COLORECTAL CANCER METASTATIC
     Route: 042
  2. CAPECITABINE [Suspect]
     Dosage: 2000 MG TWICE A DAY FROM DAY 1 TO DAY 15, Q3W
     Route: 048
  3. COLACE [Concomitant]
     Dosage: UNK
     Route: 065
     Dates: start: 20040915
  4. SENOKOT [Concomitant]
     Dosage: UNK
     Route: 065
     Dates: start: 20040915
  5. MOM W CASCARA [Concomitant]
     Dosage: UNK
     Route: 065
     Dates: start: 20040615
  6. LACTULOSE [Concomitant]
     Dosage: UNK
     Route: 065
     Dates: start: 20050120
  7. ATIVAN [Concomitant]
     Dosage: UNK
     Route: 065
     Dates: start: 20050303
  8. IMODIUM [Concomitant]
     Dosage: UNK
     Route: 065
     Dates: start: 20050427

REACTIONS (2)
  - ENTERITIS [None]
  - PYREXIA [None]
